FAERS Safety Report 10218553 (Version 1)
Quarter: 2014Q2

REPORT INFORMATION
  Report Type: Report from Study
  Country: CA (occurrence: CA)
  Receive Date: 20140605
  Receipt Date: 20140605
  Transmission Date: 20141212
  Serious: Yes (Other)
  Sender: FDA-Public Use
  Company Number: CA-JNJFOC-20140518581

PATIENT
  Age: 21 Year
  Sex: Female
  Weight: 70.8 kg

DRUGS (3)
  1. REMICADE [Suspect]
     Indication: COLITIS ULCERATIVE
     Dosage: 16TH INFUSION
     Route: 042
     Dates: start: 20140528
  2. REMICADE [Suspect]
     Indication: COLITIS ULCERATIVE
     Route: 042
     Dates: start: 20120514
  3. MERCAPTOPURINE [Concomitant]
     Route: 065

REACTIONS (1)
  - Perineal ulceration [Not Recovered/Not Resolved]
